FAERS Safety Report 9575993 (Version 1)
Quarter: 2013Q4

REPORT INFORMATION
  Report Type: Spontaneous
  Country: US (occurrence: US)
  Receive Date: 20131001
  Receipt Date: 20131001
  Transmission Date: 20140711
  Serious: No
  Sender: FDA-Public Use
  Company Number: US-AMGEN-USASP2013000541

PATIENT
  Age: 43 Year
  Sex: Female
  Weight: 92.97 kg

DRUGS (10)
  1. ENBREL [Suspect]
     Indication: PRODUCT USED FOR UNKNOWN INDICATION
     Dosage: 50 MG, QWK
     Route: 058
  2. FENOFIBRATE [Concomitant]
     Dosage: 134 MG, UNK
  3. FIBER [Concomitant]
     Dosage: CHW
  4. OMEGA 3                            /01334101/ [Concomitant]
     Dosage: 1000 MG, UNK
  5. CALCIUM [Concomitant]
     Dosage: 500 UNK, UNK
  6. MULTIVITAMINS, PLAIN [Concomitant]
     Dosage: UNK
  7. PRAVASTATIN [Concomitant]
     Dosage: 10 MG, UNK
  8. LISINOPRIL [Concomitant]
     Dosage: 10 MG, UNK
  9. METHOTREXATE [Concomitant]
     Dosage: 1 G, UNK
  10. METFORMIN [Concomitant]
     Dosage: 1000 MG, UNK

REACTIONS (1)
  - Nasopharyngitis [Unknown]
